FAERS Safety Report 4369502-0 (Version None)
Quarter: 2004Q2

REPORT INFORMATION
  Report Type: 
  Country: None (occurrence: None)
  Receive Date: 20040603
  Receipt Date: 20040527
  Transmission Date: 20050107
  Serious: Yes (Other)
  Sender: FDA-Public Use
  Company Number: 200415533GDDC

PATIENT
  Age: 42 Year
  Sex: Female

DRUGS (11)
  1. HERBESSER ^TANABE^ [Suspect]
     Indication: PRINZMETAL ANGINA
     Dosage: DOSE: UNK
     Route: 048
  2. ZITHROMAX [Suspect]
     Dosage: DOSE: UNK
  3. ITOROL [Suspect]
     Dosage: DOSE: UNK
  4. BLOPRESS [Suspect]
     Dosage: DOSE: UNK
  5. NATRIX [Suspect]
     Dosage: DOSE: UNK
  6. MYOCOR [Suspect]
     Dosage: DOSE: UNK
  7. LOXONIN [Suspect]
     Dosage: DOSE: UNK
  8. KETEK [Suspect]
     Dosage: DOSE: UNK
  9. PENTICILLIN [Suspect]
     Dosage: DOSE: UNK
  10. FLUMARIN [Suspect]
     Dosage: DOSE: UNK
  11. MAXIPIME [Suspect]
     Dosage: DOSE: UNK

REACTIONS (6)
  - ERYTHEMA [None]
  - LIP HAEMORRHAGE [None]
  - MOUTH ULCERATION [None]
  - OCULAR HYPERAEMIA [None]
  - PYREXIA [None]
  - RASH [None]
